FAERS Safety Report 18130860 (Version 5)
Quarter: 2020Q4

REPORT INFORMATION
  Report Type: Spontaneous
  Country: JP (occurrence: JP)
  Receive Date: 20200810
  Receipt Date: 20201110
  Transmission Date: 20210113
  Serious: Yes (Hospitalization, Other)
  Sender: FDA-Public Use
  Company Number: JP-NOVOPROD-743693

PATIENT
  Age: 8 Year
  Sex: Female
  Weight: 18 kg

DRUGS (3)
  1. NORDITROPIN [Suspect]
     Active Substance: SOMATROPIN
     Dosage: 0.9 MG, QD
     Route: 058
     Dates: end: 20200721
  2. NORDITROPIN [Suspect]
     Active Substance: SOMATROPIN
     Indication: NOONAN SYNDROME
     Dosage: 0.23 MG/KG, QW
     Route: 058
     Dates: start: 20180213
  3. NORDITROPIN [Suspect]
     Active Substance: SOMATROPIN
     Dosage: 0.35 MG/KG, QW
     Route: 058
     Dates: start: 201808, end: 20200714

REACTIONS (5)
  - Hypoproteinaemia [Unknown]
  - Hypoalbuminaemia [Unknown]
  - Pleural effusion [Recovered/Resolved]
  - Product prescribing error [Unknown]
  - Pulmonary hypertension [Recovering/Resolving]

NARRATIVE: CASE EVENT DATE: 20200401
